FAERS Safety Report 13749369 (Version 7)
Quarter: 2017Q4

REPORT INFORMATION
  Report Type: Report from Study
  Country: DE (occurrence: DE)
  Receive Date: 20170713
  Receipt Date: 20171127
  Transmission Date: 20180320
  Serious: Yes (Hospitalization)
  Sender: FDA-Public Use
  Company Number: DE-SA-2017SA121244

PATIENT
  Age: 31 Year
  Sex: Male
  Weight: 86 kg

DRUGS (6)
  1. PARACETAMOL [Concomitant]
     Active Substance: ACETAMINOPHEN
     Route: 065
  2. SAR231893 [Suspect]
     Active Substance: DUPILUMAB
     Indication: DERMATITIS ATOPIC
     Route: 058
     Dates: start: 20141001, end: 20141001
  3. PROTOPIC [Concomitant]
     Active Substance: TACROLIMUS
     Dosage: 0.1%
     Route: 065
  4. BETNESOL [Concomitant]
     Active Substance: BETAMETHASONE
     Route: 065
  5. PANTOPRAZOLE [Concomitant]
     Active Substance: PANTOPRAZOLE
     Dosage: INN WAS REPORTED AS PANTOPRAZOLE SODIUM SESQUIHYDRATE
     Route: 065
  6. SAR231893 [Suspect]
     Active Substance: DUPILUMAB
     Indication: DERMATITIS ATOPIC
     Route: 058
     Dates: start: 201410, end: 20170525

REACTIONS (1)
  - Erythema nodosum [Recovered/Resolved]

NARRATIVE: CASE EVENT DATE: 20170623
